FAERS Safety Report 4526287-2 (Version None)
Quarter: 2004Q4

REPORT INFORMATION
  Report Type: 
  Country: None (occurrence: None)
  Receive Date: 20041210
  Receipt Date: 20041125
  Transmission Date: 20050328
  Serious: Yes (Other)
  Sender: FDA-Public Use
  Company Number: D0045323A

PATIENT
  Sex: 0

DRUGS (5)
  1. TEMOVATE [Suspect]
     Dosage: TOPICAL
     Route: 061
  2. BASISCREME (FORMULATION UNKNOWN) (BASISCREME) [Suspect]
     Dosage: TOPICAL   (DURATION: YEARS)
     Route: 061
  3. ULTRALAN [Concomitant]
  4. TRIAMCINOLONE [Concomitant]
  5. TOPICAL SKIN PREPARATION [Concomitant]

REACTIONS (1)
  - CATARACT [None]
